FAERS Safety Report 4554761-1 (Version None)
Quarter: 2004Q4

REPORT INFORMATION
  Report Type: 
  Country: None (occurrence: None)
  Receive Date: 20041227
  Receipt Date: 20040602
  Transmission Date: 20050328
  Serious: No
  Sender: FDA-Public Use
  Company Number: 2004-0006919

PATIENT
  Sex: Male

DRUGS (2)
  1. VIREAD [Suspect]
     Indication: HIV INFECTION
     Dates: start: 20040216
  2. HYDROXYUREA [Concomitant]

REACTIONS (3)
  - MYALGIA [None]
  - PHARYNGOLARYNGEAL PAIN [None]
  - TONSILLAR DISORDER [None]
